FAERS Safety Report 8147705-7 (Version None)
Quarter: 2012Q1

REPORT INFORMATION
  Report Type: 
  Country: None (occurrence: None)
  Receive Date: 20120218
  Receipt Date: 20110307
  Transmission Date: 20120608
  Serious: No
  Sender: FDA-Public Use
  Company Number: US-ALLERGAN-1103178US

PATIENT
  Sex: Female

DRUGS (1)
  1. BOTOX COSMETIC [Suspect]
     Indication: SKIN WRINKLING
     Dosage: UNK
     Dates: start: 20101220, end: 20101220

REACTIONS (7)
  - FACIAL PARESIS [None]
  - PHARYNGEAL HYPOAESTHESIA [None]
  - HYPOAESTHESIA ORAL [None]
  - RESPIRATORY TRACT CONGESTION [None]
  - COUGH [None]
  - WRONG DRUG ADMINISTERED [None]
  - SINUS DISORDER [None]
